FAERS Safety Report 10215847 (Version 1)
Quarter: 2014Q2

REPORT INFORMATION
  Report Type: Spontaneous
  Country: US (occurrence: US)
  Receive Date: 20140604
  Receipt Date: 20140604
  Transmission Date: 20141212
  Serious: No
  Sender: FDA-Public Use
  Company Number: US-009507513-1405USA011873

PATIENT
  Sex: Female
  Weight: 59.86 kg

DRUGS (12)
  1. ZOCOR [Suspect]
     Dosage: UNK
     Route: 048
     Dates: end: 2014
  2. CRESTOR [Concomitant]
     Indication: BLOOD CHOLESTEROL INCREASED
     Dosage: 1/4 TABLET
     Route: 048
     Dates: start: 2014, end: 20140414
  3. LISINOPRIL [Concomitant]
     Dosage: 20 MG, UNK
     Dates: start: 2011
  4. DULOXETINE HYDROCHLORIDE [Concomitant]
     Indication: DEPRESSION
     Dosage: 60 MG, QD
     Route: 048
     Dates: start: 2014, end: 20140414
  5. HYDROCHLOROTHIAZIDE [Concomitant]
     Dosage: 1/2 TABLET,  QD
  6. METFORMIN [Concomitant]
     Dosage: 500 MG, QD
  7. GABAPENTIN [Concomitant]
     Dosage: 100 MG, UNK
  8. VITAMIN D (UNSPECIFIED) [Concomitant]
     Dosage: 50,000 IU
  9. ENDOCET [Concomitant]
     Dosage: 7.5/325 MG
  10. COPAXONE [Concomitant]
     Dosage: UNK
     Dates: end: 20140407
  11. CALTRATE (CALCIUM CARBONATE) [Concomitant]
     Dosage: UNK
  12. CYMBALTA [Concomitant]
     Dosage: UNK
     Dates: end: 20140407

REACTIONS (2)
  - Arthralgia [Unknown]
  - Bone pain [Unknown]
